FAERS Safety Report 4853003-7 (Version None)
Quarter: 2005Q4

REPORT INFORMATION
  Report Type: 
  Country: None (occurrence: None)
  Receive Date: 20051212
  Receipt Date: 20051129
  Transmission Date: 20060501
  Serious: Yes (Death, Hospitalization)
  Sender: FDA-Public Use
  Company Number: 13002

PATIENT
  Age: 66 Year
  Sex: Male
  Weight: 84.7 kg

DRUGS (14)
  1. DACARBAZINE [Suspect]
     Indication: HODGKIN'S DISEASE
     Dosage: 375 MG/M2 IV
     Route: 042
     Dates: start: 20050712, end: 20050712
  2. DACARBAZINE [Suspect]
     Indication: HODGKIN'S DISEASE
     Dosage: 375 MG/M2 IV
     Route: 042
     Dates: start: 20050720, end: 20050720
  3. DACARBAZINE [Suspect]
     Indication: HODGKIN'S DISEASE
     Dosage: 375 MG/M2 IV
     Route: 042
     Dates: start: 20050809, end: 20050809
  4. DACARBAZINE [Suspect]
     Indication: HODGKIN'S DISEASE
     Dosage: 375 MG/M2 IV
     Route: 042
     Dates: start: 20050823, end: 20050823
  5. BLEOMYCIN [Suspect]
     Indication: HODGKIN'S DISEASE
     Dosage: 10 IU/M2 IV
     Route: 042
     Dates: start: 20050712, end: 20050712
  6. BLEOMYCIN [Suspect]
     Indication: HODGKIN'S DISEASE
     Dosage: 10 IU/M2 IV
     Route: 042
     Dates: start: 20050720, end: 20050720
  7. BLEOMYCIN [Suspect]
     Indication: HODGKIN'S DISEASE
     Dosage: 10 IU/M2 IV
     Route: 042
     Dates: start: 20050809, end: 20050809
  8. BLEOMYCIN [Suspect]
     Indication: HODGKIN'S DISEASE
     Dosage: 10 IU/M2 IV
     Route: 042
     Dates: start: 20050823, end: 20050823
  9. CEFUROXIME [Concomitant]
  10. CODEINE [Concomitant]
  11. COLESTYRAMINE [Concomitant]
  12. PREDNISONE TAB [Concomitant]
  13. SERTRALINE HCL [Concomitant]
  14. WARFARIN [Concomitant]

REACTIONS (6)
  - BLOOD BILIRUBIN INCREASED [None]
  - CRYPTOGENIC ORGANIZING PNEUMONIA [None]
  - HAEMOGLOBIN DECREASED [None]
  - LIPASE INCREASED [None]
  - RESPIRATORY DISTRESS [None]
  - RESPIRATORY FAILURE [None]
